FAERS Safety Report 12967426 (Version 3)
Quarter: 2017Q1

REPORT INFORMATION
  Report Type: Report from Study
  Country: IT (occurrence: IT)
  Receive Date: 20161123
  Receipt Date: 20170203
  Transmission Date: 20170428
  Serious: Yes (Other)
  Sender: FDA-Public Use
  Company Number: IT-BRISTOL-MYERS SQUIBB COMPANY-BMS-2016-097688

PATIENT
  Age: 57 Year
  Sex: Male

DRUGS (1)
  1. NIVOLUMAB [Suspect]
     Active Substance: NIVOLUMAB
     Indication: NON-SMALL CELL LUNG CANCER
     Dosage: 3 MG/KG, UNK
     Route: 042
     Dates: start: 20150903

REACTIONS (5)
  - Hypokalaemia [Unknown]
  - Adrenal insufficiency [Unknown]
  - Hypomagnesaemia [Unknown]
  - Hypocalcaemia [Unknown]
  - Hypophosphataemia [Unknown]

NARRATIVE: CASE EVENT DATE: 20160822
